FAERS Safety Report 4484296-6 (Version None)
Quarter: 2004Q3

REPORT INFORMATION
  Report Type: 
  Country: None (occurrence: None)
  Receive Date: 20040921
  Receipt Date: 20040123
  Transmission Date: 20050211
  Serious: Yes (Disabling)
  Sender: FDA-Public Use
  Company Number: 163-20785-04010642(0)

PATIENT
  Age: 72 Year
  Sex: Female

DRUGS (2)
  1. THALOMID [Suspect]
     Indication: PRURITUS
     Dosage: SEE IMAGE
     Route: 048
     Dates: start: 20040101, end: 20040101
  2. THALOMID [Suspect]
     Indication: PRURITUS
     Dosage: SEE IMAGE
     Route: 048
     Dates: start: 20040118

REACTIONS (2)
  - ANXIETY [None]
  - HEADACHE [None]
